FAERS Safety Report 14559825 (Version 2)
Quarter: 2018Q1

REPORT INFORMATION
  Report Type: Spontaneous
  Country: DE (occurrence: DE)
  Receive Date: 20180221
  Receipt Date: 20180323
  Transmission Date: 20180509
  Serious: Yes (Other)
  Sender: FDA-Public Use
  Company Number: DE-BEH-2018087910

PATIENT
  Age: 61 Year
  Sex: Female
  Weight: 50 kg

DRUGS (4)
  1. BERIGLOBIN [Suspect]
     Active Substance: HUMAN IMMUNOGLOBULIN G
     Indication: GLOSSOPHARYNGEAL NEURALGIA
  2. HIZENTRA [Suspect]
     Active Substance: HUMAN IMMUNOGLOBULIN G
     Indication: GLOSSOPHARYNGEAL NEURALGIA
  3. HIZENTRA [Suspect]
     Active Substance: HUMAN IMMUNOGLOBULIN G
     Indication: CHRONIC IDIOPATHIC PAIN SYNDROME
     Dosage: 40 ML, Q3W, 2X20ML EVERY 3-4 WKS
     Route: 058
  4. BERIGLOBIN [Suspect]
     Active Substance: HUMAN IMMUNOGLOBULIN G
     Indication: NEURALGIA
     Dosage: 4 DF, TOT
     Route: 065

REACTIONS (6)
  - Pain in extremity [Recovered/Resolved]
  - Asthenia [Recovered/Resolved]
  - Influenza like illness [Recovered/Resolved]
  - Hyponatraemia [Not Recovered/Not Resolved]
  - Pyrexia [Recovered/Resolved]
  - Renal salt-wasting syndrome [Not Recovered/Not Resolved]
